FAERS Safety Report 6623514-2 (Version None)
Quarter: 2010Q1

REPORT INFORMATION
  Report Type: 
  Country: None (occurrence: None)
  Receive Date: 20100310
  Receipt Date: 20100303
  Transmission Date: 20100710
  Serious: Yes (Other)
  Sender: FDA-Public Use
  Company Number: US-RB-004340-10

PATIENT
  Age: 13 Year
  Sex: Female
  Weight: 63 kg

DRUGS (1)
  1. MUCINEX DM [Suspect]
     Route: 048
     Dates: start: 20100301

REACTIONS (2)
  - DIZZINESS [None]
  - PSYCHOMOTOR HYPERACTIVITY [None]
